FAERS Safety Report 18010076 (Version 5)
Quarter: 2020Q3

REPORT INFORMATION
  Report Type: Spontaneous
  Country: ES (occurrence: ES)
  Receive Date: 20200710
  Receipt Date: 20200816
  Transmission Date: 20201103
  Serious: Yes (Life-Threatening, Hospitalization, Other)
  Sender: FDA-Public Use
  Company Number: NVSC2020ES189472

PATIENT
  Age: 78 Year
  Sex: Male

DRUGS (14)
  1. LOPINAVIR/RITONAVIR [Suspect]
     Active Substance: LOPINAVIR\RITONAVIR
     Indication: COVID-19
     Dosage: UNK, BID
     Route: 065
  2. HYDROXYCHLOROQUINE [Concomitant]
     Active Substance: HYDROXYCHLOROQUINE
     Indication: COVID-19
     Dosage: 200 MG, BID
     Route: 065
  3. OXYGEN. [Concomitant]
     Active Substance: OXYGEN
     Indication: COVID-19
     Dosage: UNK
     Route: 065
  4. RISPERIDONE. [Suspect]
     Active Substance: RISPERIDONE
     Indication: DELIRIUM
     Dosage: 1 MG, BID
     Route: 065
  5. RISPERIDONE. [Suspect]
     Active Substance: RISPERIDONE
     Dosage: 1 MG, QD (TWICE DAILY FOR THE NEXT 48 H)
     Route: 065
  6. RISPERIDONE. [Suspect]
     Active Substance: RISPERIDONE
     Dosage: 1 MG, Q12H
     Route: 065
  7. TOCILIZUMAB. [Concomitant]
     Active Substance: TOCILIZUMAB
     Indication: PYREXIA
  8. INTERFERON BETA 1B [Concomitant]
     Active Substance: INTERFERON BETA-1B
     Indication: COVID-19
     Dosage: UNK
     Route: 065
  9. HYDROXYCHLOROQUINE [Concomitant]
     Active Substance: HYDROXYCHLOROQUINE
     Dosage: 200 MG, Q12H
     Route: 065
  10. RISPERIDONE. [Suspect]
     Active Substance: RISPERIDONE
     Dosage: 2 MG, QD
     Route: 065
  11. LOPINAVIR/RITONAVIR [Suspect]
     Active Substance: LOPINAVIR\RITONAVIR
     Dosage: UNK, Q12H (400MG/100MG)
     Route: 065
  12. MORPHINE [Suspect]
     Active Substance: MORPHINE
     Indication: DYSPNOEA
     Dosage: 3 MG, ONCE/SINGLE
     Route: 065
  13. TOCILIZUMAB. [Concomitant]
     Active Substance: TOCILIZUMAB
     Indication: COVID-19
     Dosage: 2 MG, QD
     Route: 048
  14. LOPINAVIR/RITONAVIR [Suspect]
     Active Substance: LOPINAVIR\RITONAVIR
     Dosage: UNK, QD (400MG/100MG)
     Route: 048

REACTIONS (16)
  - Myoclonus [Recovered/Resolved]
  - Serotonin syndrome [Recovered/Resolved]
  - Condition aggravated [Recovered/Resolved]
  - Altered state of consciousness [Unknown]
  - Tachycardia [Recovered/Resolved]
  - Hyperreflexia [Recovered/Resolved]
  - Confusional state [Unknown]
  - Ocular discomfort [Unknown]
  - Hyperhidrosis [Recovered/Resolved]
  - Off label use [Unknown]
  - Encephalopathy [Recovered/Resolved]
  - Blood creatinine increased [Recovered/Resolved]
  - Clonus [Recovered/Resolved]
  - Hyperthermia [Recovered/Resolved]
  - Cogwheel rigidity [Recovered/Resolved]
  - Product use in unapproved indication [Unknown]
